FAERS Safety Report 13950032 (Version 1)
Quarter: 2017Q3

REPORT INFORMATION
  Report Type: Spontaneous
  Country: US (occurrence: US)
  Receive Date: 20170908
  Receipt Date: 20170908
  Transmission Date: 20171128
  Serious: Yes (Hospitalization, Other)
  Sender: FDA-Public Use
  Company Number: US-ROCHE-1134841

PATIENT
  Sex: Male

DRUGS (8)
  1. EPOGEN [Concomitant]
     Active Substance: ERYTHROPOIETIN
     Dosage: 40000 UNITS
     Route: 065
  2. NEUPOGEN [Concomitant]
     Active Substance: FILGRASTIM
     Route: 058
  3. RITUXAN [Suspect]
     Active Substance: RITUXIMAB
     Indication: CHRONIC LYMPHOCYTIC LEUKAEMIA
     Route: 065
     Dates: start: 20000107
  4. DIFLUCAN [Concomitant]
     Active Substance: FLUCONAZOLE
  5. NEUPOGEN [Concomitant]
     Active Substance: FILGRASTIM
     Route: 058
  6. DIFLUCAN [Concomitant]
     Active Substance: FLUCONAZOLE
     Route: 065
  7. LEVAQUIN [Concomitant]
     Active Substance: LEVOFLOXACIN
     Route: 065
  8. COMBIVENT [Concomitant]
     Active Substance: ALBUTEROL SULFATE\IPRATROPIUM BROMIDE

REACTIONS (9)
  - Pneumonia [Unknown]
  - Cough [Unknown]
  - Pyrexia [Unknown]
  - Sepsis [Unknown]
  - Diarrhoea [Unknown]
  - Fatigue [Unknown]
  - Disease progression [Unknown]
  - Chills [Unknown]
  - Lip pain [Unknown]
